FAERS Safety Report 25324616 (Version 2)
Quarter: 2025Q3

REPORT INFORMATION
  Report Type: Spontaneous
  Country: US (occurrence: US)
  Receive Date: 20250516
  Receipt Date: 20250930
  Transmission Date: 20251021
  Serious: No
  Sender: MERCK SHARP & DOHME LLC
  Company Number: US-009507513-2281607

PATIENT
  Sex: Female
  Weight: 52.163 kg

DRUGS (21)
  1. WINREVAIR [Suspect]
     Active Substance: SOTATERCEPT-CSRK
  2. WINREVAIR [Suspect]
     Active Substance: SOTATERCEPT-CSRK
  3. WINREVAIR [Suspect]
     Active Substance: SOTATERCEPT-CSRK
  4. WINREVAIR [Suspect]
     Active Substance: SOTATERCEPT-CSRK
  5. TYVASO DPI [Suspect]
     Active Substance: TREPROSTINIL
     Indication: Pulmonary arterial hypertension
     Route: 055
     Dates: start: 20240626
  6. FUROSEMIDE [Concomitant]
     Active Substance: FUROSEMIDE
  7. FAMOTIDINE [Concomitant]
     Active Substance: FAMOTIDINE
  8. NITRO-BID [Concomitant]
     Active Substance: NITROGLYCERIN
  9. IMODIUM [Concomitant]
     Active Substance: LOPERAMIDE HYDROCHLORIDE
  10. ANTACID [Concomitant]
     Active Substance: ALUMINUM HYDROXIDE\CALCIUM CARBONATE\DIMETHICONE\MAGNESIUM HYDROXIDE
  11. OPSUMIT [Concomitant]
     Active Substance: MACITENTAN
  12. TADALAFIL [Concomitant]
     Active Substance: TADALAFIL
  13. CALCIUM [Concomitant]
     Active Substance: CALCIUM
  14. HERBALS\TURMERIC [Concomitant]
     Active Substance: HERBALS\TURMERIC
  15. LEVOTHYROXINE SODIUM [Concomitant]
     Active Substance: LEVOTHYROXINE SODIUM
  16. VITAMINS [Concomitant]
     Active Substance: VITAMINS
  17. PREDNISONE [Concomitant]
     Active Substance: PREDNISONE
  18. OXYGEN [Concomitant]
     Active Substance: OXYGEN
  19. OMEPRAZOLE [Concomitant]
     Active Substance: OMEPRAZOLE
  20. ATROVENT HFA [Concomitant]
     Active Substance: IPRATROPIUM BROMIDE
  21. FERROUS SULFATE [Concomitant]
     Active Substance: FERROUS SULFATE

REACTIONS (1)
  - Injection site erythema [Recovered/Resolved]
